FAERS Safety Report 9302100 (Version 1)
Quarter: 2013Q2

REPORT INFORMATION
  Report Type: Spontaneous
  Country: GB (occurrence: GB)
  Receive Date: 20130521
  Receipt Date: 20130521
  Transmission Date: 20140414
  Serious: Yes (Disabling, Other)
  Sender: FDA-Public Use
  Company Number: GB-B.I. PHARMACEUTICALS,INC./RIDGEFIELD-2013-UK-01091UK

PATIENT
  Age: 76 Year
  Sex: Female
  Weight: 78 kg

DRUGS (4)
  1. PRADAXA [Suspect]
     Indication: EMBOLISM
     Route: 048
     Dates: start: 20130312, end: 20130321
  2. ATORVASTATIN [Concomitant]
     Route: 048
  3. HORMONIN [Concomitant]
     Route: 048
  4. THYROXINE [Concomitant]
     Indication: HYPOTHYROIDISM
     Route: 048

REACTIONS (1)
  - Urinary incontinence [Recovered/Resolved]
